FAERS Safety Report 20405571 (Version 1)
Quarter: 2022Q1

REPORT INFORMATION
  Report Type: Spontaneous
  Country: CH (occurrence: CH)
  Receive Date: 20220131
  Receipt Date: 20220131
  Transmission Date: 20220423
  Serious: Yes (Life-Threatening, Other)
  Sender: FDA-Public Use
  Company Number: None

PATIENT
  Age: 78 Year
  Sex: Male

DRUGS (10)
  1. PIPERACILLIN SODIUM\TAZOBACTAM SODIUM [Suspect]
     Active Substance: PIPERACILLIN SODIUM\TAZOBACTAM SODIUM
     Indication: Pneumonia aspiration
     Dosage: 4.5 G
     Route: 041
     Dates: start: 20211008, end: 20211008
  2. GLYCOPYRROLATE\NEOSTIGMINE [Suspect]
     Active Substance: GLYCOPYRROLATE\NEOSTIGMINE
     Dosage: 0.5 DF, 2X/DAY  (1/2-0-1/2-0)
     Route: 042
     Dates: start: 20211015, end: 20211116
  3. ESOMEPRAZOLE MAGNESIUM [Concomitant]
     Active Substance: ESOMEPRAZOLE MAGNESIUM
     Dosage: UNK
  4. SODIUM PICOSULFATE [Concomitant]
     Active Substance: SODIUM PICOSULFATE
     Dosage: UNK
  5. PROSCAR [Concomitant]
     Active Substance: FINASTERIDE
     Dosage: UNK
  6. LEVOTHYROXINE [Concomitant]
     Active Substance: LEVOTHYROXINE
     Dosage: UNK
  7. LIORESAL [Concomitant]
     Active Substance: BACLOFEN
     Dosage: UNK
  8. NOVALGIN (METAMIZOLE SODIUM) [Concomitant]
     Active Substance: METAMIZOLE SODIUM
     Dosage: UNK
  9. FRAGMIN [Concomitant]
     Active Substance: DALTEPARIN SODIUM
     Dosage: UNK
  10. ALBUTEROL SULFATE\IPRATROPIUM BROMIDE [Concomitant]
     Active Substance: ALBUTEROL SULFATE\IPRATROPIUM BROMIDE
     Dosage: UNK

REACTIONS (5)
  - Salivary hypersecretion [Unknown]
  - Anaphylactic reaction [Recovered/Resolved]
  - Pneumonia aspiration [Unknown]
  - Wrong product administered [Recovered/Resolved]
  - Product name confusion [Unknown]

NARRATIVE: CASE EVENT DATE: 20211015
